FAERS Safety Report 15833785 (Version 1)
Quarter: 2019Q1

REPORT INFORMATION
  Report Type: Spontaneous
  Country: US (occurrence: US)
  Receive Date: 20190116
  Receipt Date: 20190116
  Transmission Date: 20190417
  Serious: No
  Sender: FDA-Public Use
  Company Number: US-FRESENIUS KABI-FK201900509

PATIENT
  Age: 60 Year
  Sex: Female
  Weight: 52.5 kg

DRUGS (1)
  1. MANNITOL INJECTION, USP [Suspect]
     Active Substance: MANNITOL
     Indication: HEADACHE
     Route: 042
     Dates: start: 201812, end: 201812

REACTIONS (3)
  - Product use in unapproved indication [Recovered/Resolved]
  - Condition aggravated [Recovered/Resolved]
  - Headache [Recovered/Resolved]

NARRATIVE: CASE EVENT DATE: 201812
